FAERS Safety Report 8410794-6 (Version None)
Quarter: 2012Q2

REPORT INFORMATION
  Report Type: 
  Country: None (occurrence: None)
  Receive Date: 20120605
  Receipt Date: 20120524
  Transmission Date: 20120825
  Serious: Yes (Life-Threatening, Other)
  Sender: FDA-Public Use
  Company Number: JP-ASTELLAS-2011US007279

PATIENT
  Sex: Male
  Weight: 47 kg

DRUGS (7)
  1. TARCEVA [Suspect]
     Dosage: 100 MG, UID/QD
     Route: 048
     Dates: end: 20120125
  2. DILTIAZEM HCL [Suspect]
     Indication: HYPERTENSION
     Dosage: 100 MG, UID/QD
     Route: 048
  3. TARCEVA [Suspect]
     Dosage: 100 MG, UID/QD
     Route: 048
     Dates: start: 20110729, end: 20111030
  4. COTRIM [Suspect]
     Indication: PRODUCT USED FOR UNKNOWN INDICATION
     Dosage: UNK
     Route: 048
  5. HORMONES AND RELATED AGENTS [Suspect]
     Indication: PRODUCT USED FOR UNKNOWN INDICATION
     Dosage: UNK
     Route: 065
     Dates: start: 20110729
  6. TARCEVA [Suspect]
     Indication: LUNG NEOPLASM MALIGNANT
     Dosage: 150 MG, UID/QD
     Route: 048
     Dates: start: 20110420, end: 20110728
  7. PLAVIX [Suspect]
     Indication: CEREBRAL INFARCTION
     Dosage: 75 MG, UID/QD
     Route: 048

REACTIONS (3)
  - ACUTE PROMYELOCYTIC LEUKAEMIA [None]
  - DIARRHOEA [None]
  - PLATELET COUNT DECREASED [None]
